FAERS Safety Report 24246664 (Version 1)
Quarter: 2024Q3

REPORT INFORMATION
  Report Type: Report from Study
  Country: ES (occurrence: ES)
  Receive Date: 20240825
  Receipt Date: 20240825
  Transmission Date: 20241017
  Serious: Yes (Other)
  Sender: JOHNSON AND JOHNSON
  Company Number: ES-JNJFOC-20240851229

PATIENT
  Age: 57 Year
  Sex: Male

DRUGS (1)
  1. TALQUETAMAB [Suspect]
     Active Substance: TALQUETAMAB
     Indication: Plasma cell myeloma
     Route: 058

REACTIONS (9)
  - Cytokine release syndrome [Unknown]
  - Bacteraemia [Unknown]
  - Mucocutaneous toxicity [Unknown]
  - Drug ineffective [Unknown]
  - Xerosis [Unknown]
  - Palmar-plantar erythrodysaesthesia syndrome [Unknown]
  - Dry mouth [Unknown]
  - Dysgeusia [Unknown]
  - Oral pain [Unknown]
